FAERS Safety Report 8106677 (Version 6)
Quarter: 2012Q4

REPORT INFORMATION
  Report Type: Spontaneous
  Country: JP (occurrence: None)
  Receive Date: 20110816
  Receipt Date: 20120529
  Transmission Date: 20130627
  Serious: Yes (Death)
  Sender: FDA-Public Use
  Company Number: JP-2011-11278

PATIENT
  Age: 75 Year
  Sex: Male
  Weight: 41 kg

DRUGS (18)
  1. SAMSCA [Suspect]
     Indication: FLUID RETENTION
     Dosage: 15 MG MILLIGRAM(S), QD, ORAL : 7.5 MG MILLIGRAM(S), QD, ORAL
     Route: 048
     Dates: start: 20110717, end: 20110719
  2. SAMSCA [Suspect]
     Indication: FLUID RETENTION
     Dosage: 15 MG MILLIGRAM(S), QD, ORAL : 7.5 MG MILLIGRAM(S), QD, ORAL
     Route: 048
     Dates: start: 20110730, end: 20110731
  3. HANP (CARPERITIDE) [Concomitant]
  4. DISTILLED WATER (WATER FOR INJECTION) [Concomitant]
  5. DOBUTREX [Concomitant]
  6. ALDACTONE [Concomitant]
  7. DIGOXIN [Concomitant]
  8. LASIX [Concomitant]
  9. ASPIRIN [Concomitant]
  10. JANUVIA [Concomitant]
  11. ZOLPIDEM TARTRATE [Concomitant]
  12. ESTAZOLAM [Concomitant]
  13. SODIUM CHLORIDE [Concomitant]
  14. LACTEC (CALCIUM CHLORIDE DIHYDRATE, POTASSIUM CHLORIDE, SODIUM LACTATE) [Concomitant]
  15. VERAPAMIL HYDROCHLORIDE [Concomitant]
  16. TAKEPRON (LANSOPRAZOLE) ORODISPERSIBLE [Concomitant]
  17. DEXTROSE [Concomitant]
  18. SODIUM CHLORIDE [Concomitant]

REACTIONS (12)
  - Condition aggravated [None]
  - Hyponatraemia [None]
  - Blood pressure decreased [None]
  - Ventricular tachycardia [None]
  - Cardiac arrest [None]
  - Respiratory arrest [None]
  - Burning sensation [None]
  - Renal failure acute [None]
  - Hyperkalaemia [None]
  - Bradycardia [None]
  - Cardiac failure [None]
  - Eosinophil count increased [None]
